FAERS Safety Report 6635222-2 (Version None)
Quarter: 2010Q1

REPORT INFORMATION
  Report Type: 
  Country: None (occurrence: None)
  Receive Date: 20100315
  Receipt Date: 20100308
  Transmission Date: 20100710
  Serious: Yes (Hospitalization)
  Sender: FDA-Public Use
  Company Number: GXBR2010US00687

PATIENT
  Age: 64 Year
  Sex: Male

DRUGS (4)
  1. TACROLIMUS (NGX) [Suspect]
     Indication: HEART TRANSPLANT
     Dosage: 1 MG, UNK
     Route: 048
     Dates: start: 20090101
  2. PROGRAF [Suspect]
     Indication: HEART TRANSPLANT
     Dosage: 1 MG, UNK
     Route: 048
     Dates: end: 20090101
  3. REQUIP [Suspect]
     Indication: RESTLESS LEGS SYNDROME
     Dosage: UNK
     Dates: start: 20091001
  4. CELLCEPT [Concomitant]

REACTIONS (7)
  - DIARRHOEA [None]
  - GASTROINTESTINAL PAIN [None]
  - HYPERHIDROSIS [None]
  - ILEUS [None]
  - INTESTINAL OBSTRUCTION [None]
  - MALAISE [None]
  - VOMITING [None]
